FAERS Safety Report 6695402-7 (Version None)
Quarter: 2010Q2

REPORT INFORMATION
  Report Type: 
  Country: None (occurrence: None)
  Receive Date: 20100422
  Receipt Date: 20100422
  Transmission Date: 20101027
  Serious: Yes (Other)
  Sender: FDA-Public Use
  Company Number: None

PATIENT
  Age: 66 Year
  Sex: Female
  Weight: 97.5234 kg

DRUGS (1)
  1. STARLIX [Suspect]
     Indication: TYPE 2 DIABETES MELLITUS
     Dosage: 120 MG. TABLETS 3X1DAY ORAL
     Route: 048
     Dates: start: 20100108, end: 20100112

REACTIONS (5)
  - DYSGEUSIA [None]
  - ERUCTATION [None]
  - FEAR [None]
  - GINGIVITIS [None]
  - TONGUE DISORDER [None]
